FAERS Safety Report 7748526-7 (Version None)
Quarter: 2011Q3

REPORT INFORMATION
  Report Type: 
  Country: None (occurrence: None)
  Receive Date: 20110914
  Receipt Date: 20110906
  Transmission Date: 20111222
  Serious: No
  Sender: FDA-Public Use
  Company Number: US-BIOGENIDEC-2011BI027494

PATIENT
  Age: 48 Year
  Sex: Female

DRUGS (5)
  1. AVONEX [Concomitant]
     Indication: MULTIPLE SCLEROSIS
     Route: 030
     Dates: start: 20100801
  2. STEROIDS (NOS) [Concomitant]
     Indication: PREMEDICATION
     Dates: start: 20110501
  3. TYSABRI [Suspect]
     Indication: MULTIPLE SCLEROSIS
     Route: 042
     Dates: start: 20110301
  4. ZANAFLEX [Concomitant]
     Indication: MUSCLE SPASMS
  5. BENADRYL [Concomitant]
     Indication: PREMEDICATION
     Dates: start: 20110501

REACTIONS (3)
  - FLUSHING [None]
  - PAIN IN EXTREMITY [None]
  - FALL [None]
